FAERS Safety Report 7330667-X (Version None)
Quarter: 2011Q1

REPORT INFORMATION
  Report Type: 
  Country: None (occurrence: None)
  Receive Date: 20110225
  Receipt Date: 20110225
  Transmission Date: 20110831
  Serious: Yes (Other)
  Sender: FDA-Public Use
  Company Number: None

PATIENT
  Sex: Female
  Weight: 49.6 kg

DRUGS (4)
  1. MAGNEVIST [Suspect]
     Indication: TURNER'S SYNDROME
     Dosage: 0.2 MMOL/KG = 18 ML ONE TIME DOSE IV
     Route: 042
     Dates: start: 20101101, end: 20101101
  2. MAGNEVIST [Suspect]
     Indication: AORTIC ANEURYSM
     Dosage: 0.2 MMOL/KG = 18 ML ONE TIME DOSE IV
     Route: 042
     Dates: start: 20101101, end: 20101101
  3. PROZAC [Concomitant]
  4. ORTHO TRI-CYCLEN [Concomitant]

REACTIONS (2)
  - TURNER'S SYNDROME [None]
  - MATERNAL DRUGS AFFECTING FOETUS [None]
